FAERS Safety Report 6524673-2 (Version None)
Quarter: 2010Q1

REPORT INFORMATION
  Report Type: 
  Country: None (occurrence: None)
  Receive Date: 20100104
  Receipt Date: 20091203
  Transmission Date: 20100710
  Serious: Yes (Death, Hospitalization)
  Sender: FDA-Public Use
  Company Number: US-SANOFI-AVENTIS-2009SA011405

PATIENT
  Age: 43 Year
  Sex: Female

DRUGS (17)
  1. DOCETAXEL [Suspect]
     Indication: OVARIAN CANCER
     Route: 042
     Dates: start: 20080328, end: 20080328
  2. DOCETAXEL [Suspect]
     Route: 042
  3. BEVACIZUMAB [Suspect]
     Indication: OVARIAN CANCER
     Route: 042
     Dates: start: 20080829, end: 20080829
  4. BEVACIZUMAB [Suspect]
     Route: 042
  5. CARBOPLATIN [Suspect]
     Indication: OVARIAN CANCER
     Route: 042
     Dates: start: 20080328, end: 20080328
  6. CARBOPLATIN [Suspect]
     Route: 042
     Dates: start: 20071204, end: 20071204
  7. PACLITAXEL [Suspect]
     Indication: OVARIAN CANCER
     Route: 042
  8. PACLITAXEL [Suspect]
     Route: 042
     Dates: start: 20071204, end: 20071204
  9. ASCORBIC ACID [Concomitant]
  10. COLACE [Concomitant]
  11. FERROUS SULFATE TAB [Concomitant]
  12. LORAZEPAM [Concomitant]
  13. MULTI-VITAMINS [Concomitant]
  14. PRILOSEC [Concomitant]
  15. PROCHLORPERAZINE [Concomitant]
  16. TRAMADOL [Concomitant]
  17. VALIUM [Concomitant]

REACTIONS (2)
  - CEREBELLAR SYNDROME [None]
  - DEATH [None]
